FAERS Safety Report 8226270-X (Version None)
Quarter: 2012Q1

REPORT INFORMATION
  Report Type: 
  Country: None (occurrence: None)
  Receive Date: 20120321
  Receipt Date: 20120319
  Transmission Date: 20120608
  Serious: Yes (Hospitalization)
  Sender: FDA-Public Use
  Company Number: PHHY2012IT024165

PATIENT

DRUGS (7)
  1. OXYCODONE AND ACETAMINOPHEN [Concomitant]
     Dosage: 1 DF, TID
     Route: 048
     Dates: start: 20120111
  2. NAPRILENE [Concomitant]
  3. ZOMETA [Concomitant]
     Dosage: 4 MG, UNK
     Route: 042
     Dates: start: 20120229, end: 20120229
  4. DEXAMETHASONE SODIUM PHOSPHATE [Concomitant]
     Dosage: 16 DRP, UNK
     Dates: start: 20120111
  5. NEBIVOLOL HCL [Concomitant]
  6. AFINITOR [Suspect]
     Indication: RENAL CELL CARCINOMA
     Dosage: 10 MG, DAILY
     Route: 048
     Dates: start: 20120214
  7. VOTRIENT [Concomitant]
     Dates: end: 20120206

REACTIONS (2)
  - MYOCARDIAL INFARCTION [None]
  - CHEST PAIN [None]
